FAERS Safety Report 24271597 (Version 1)
Quarter: 2024Q3

REPORT INFORMATION
  Report Type: Report from Study
  Country: BR (occurrence: BR)
  Receive Date: 20240902
  Receipt Date: 20240902
  Transmission Date: 20241016
  Serious: Yes (Other)
  Sender: ABBVIE
  Company Number: BR-JNJFOC-20240855192

PATIENT

DRUGS (3)
  1. IMBRUVICA [Suspect]
     Active Substance: IBRUTINIB
     Indication: Chronic lymphocytic leukaemia
     Route: 048
  2. RITUXIMAB [Concomitant]
     Active Substance: RITUXIMAB
     Indication: Product used for unknown indication
     Route: 065
  3. UNSPECIFIED INGREDIENT [Concomitant]
     Active Substance: UNSPECIFIED INGREDIENT
     Indication: Product used for unknown indication
     Route: 065

REACTIONS (12)
  - Atrial fibrillation [Unknown]
  - Hypertension [Unknown]
  - Sepsis [Unknown]
  - Haemorrhage [Unknown]
  - Ischaemic stroke [Unknown]
  - Cardiac failure [Unknown]
  - Acute coronary syndrome [Unknown]
  - Embolism arterial [Unknown]
  - Haemorrhage intracranial [Unknown]
  - Gastrointestinal haemorrhage [Unknown]
  - Arrhythmia [Unknown]
  - Ventricular tachycardia [Unknown]
